FAERS Safety Report 6168026-8 (Version None)
Quarter: 2009Q2

REPORT INFORMATION
  Report Type: 
  Country: None (occurrence: None)
  Receive Date: 20090423
  Receipt Date: 20090423
  Transmission Date: 20091009
  Serious: Yes (Hospitalization, Disabling)
  Sender: FDA-Public Use
  Company Number: None

PATIENT
  Age: 62 Year
  Sex: Male
  Weight: 106.5953 kg

DRUGS (5)
  1. LISINOPRIL [Suspect]
     Indication: HYPERTENSION
     Dosage: 5MG DAILY PO
     Route: 048
  2. LEVETIRACETAM [Concomitant]
  3. AMLODIPINE [Concomitant]
  4. METFORMIN HCL [Concomitant]
  5. TEMODAR CHEMOTHERAPY [Concomitant]

REACTIONS (1)
  - PANCREATITIS [None]
